FAERS Safety Report 4337199-1 (Version None)
Quarter: 2004Q2

REPORT INFORMATION
  Report Type: 
  Country: None (occurrence: None)
  Receive Date: 20040408
  Receipt Date: 20040326
  Transmission Date: 20050107
  Serious: Yes (Life-Threatening)
  Sender: FDA-Public Use
  Company Number: RENA-10912

PATIENT
  Age: 57 Year
  Sex: Female

DRUGS (6)
  1. RENAGEL [Suspect]
     Indication: HYPERPHOSPHATAEMIA
     Dosage: 1.5 G DAILY PO
     Route: 048
     Dates: start: 20030712, end: 20040123
  2. CALCIUM CARBONATE [Concomitant]
  3. CANDESARTAN CILEXETIL [Concomitant]
  4. AMLODIPINE BESYLATE [Concomitant]
  5. ALFACALCIDOL [Concomitant]
  6. NIFEDIPINE [Concomitant]

REACTIONS (3)
  - C-REACTIVE PROTEIN INCREASED [None]
  - LARGE INTESTINE PERFORATION [None]
  - PYREXIA [None]
